FAERS Safety Report 6959498-7 (Version None)
Quarter: 2010Q3

REPORT INFORMATION
  Report Type: 
  Country: None (occurrence: None)
  Receive Date: 20100827
  Receipt Date: 20100813
  Transmission Date: 20110219
  Serious: No
  Sender: FDA-Public Use
  Company Number: SPI201000216

PATIENT
  Age: 47 Year
  Sex: Female
  Weight: 68 kg

DRUGS (6)
  1. AMITIZA [Suspect]
     Indication: CONSTIPATION
     Dosage: 8 MCG, ORAL ; 24 MG, ORAL
     Route: 048
     Dates: start: 20080101, end: 20080101
  2. AMITIZA [Suspect]
     Indication: CONSTIPATION
     Dosage: 8 MCG, ORAL ; 24 MG, ORAL
     Route: 048
     Dates: start: 20080101, end: 20080101
  3. SYMBICORT [Concomitant]
  4. SINGULAIR [Concomitant]
  5. ORTHO NOVUM 0.5/50 21 TAB [Concomitant]
  6. TOPAMAX [Concomitant]

REACTIONS (13)
  - ABDOMINAL DISTENSION [None]
  - ASTHMA [None]
  - DISORIENTATION [None]
  - DIZZINESS [None]
  - DRUG INEFFECTIVE [None]
  - DYSPNOEA [None]
  - ERYTHEMA [None]
  - FEELING ABNORMAL [None]
  - FEELING HOT [None]
  - HEART RATE INCREASED [None]
  - HYPERTENSION [None]
  - PALPITATIONS [None]
  - VOMITING [None]
